FAERS Safety Report 16251959 (Version 2)
Quarter: 2019Q2

REPORT INFORMATION
  Report Type: Spontaneous
  Country: AR (occurrence: AR)
  Receive Date: 20190429
  Receipt Date: 20190430
  Transmission Date: 20190711
  Serious: Yes (Death)
  Sender: FDA-Public Use
  Company Number: AR-PFIZER INC-2019183098

PATIENT
  Age: 85 Year
  Sex: Female

DRUGS (2)
  1. LETROZOL [Concomitant]
     Active Substance: LETROZOLE
  2. IBRANCE [Suspect]
     Active Substance: PALBOCICLIB
     Dosage: UNK

REACTIONS (1)
  - Death [Fatal]

NARRATIVE: CASE EVENT DATE: 20190421
